FAERS Safety Report 5827181-7 (Version None)
Quarter: 2008Q3

REPORT INFORMATION
  Report Type: 
  Country: None (occurrence: None)
  Receive Date: 20080730
  Receipt Date: 20080716
  Transmission Date: 20090109
  Serious: Yes (Other)
  Sender: FDA-Public Use
  Company Number: US-JNJFOC-20080706596

PATIENT
  Sex: Female

DRUGS (3)
  1. ARESTIN [Suspect]
     Indication: DRUG USE FOR UNKNOWN INDICATION
  2. SYNTHROID [Concomitant]
     Route: 065
  3. VITAMIN TAB [Concomitant]
     Route: 065

REACTIONS (5)
  - EYE PAIN [None]
  - EYE SWELLING [None]
  - OCULAR HYPERAEMIA [None]
  - SKIN EXFOLIATION [None]
  - SUNBURN [None]
